FAERS Safety Report 8400223-0 (Version None)
Quarter: 2012Q2

REPORT INFORMATION
  Report Type: 
  Country: None (occurrence: None)
  Receive Date: 20120531
  Receipt Date: 20120521
  Transmission Date: 20120825
  Serious: Yes (Hospitalization)
  Sender: FDA-Public Use
  Company Number: JP-ABBOTT-11P-087-0882328-00

PATIENT
  Sex: Female
  Weight: 48 kg

DRUGS (9)
  1. HUMIRA [Suspect]
     Indication: COLITIS ULCERATIVE
     Route: 058
     Dates: start: 20100316, end: 20100512
  2. LANSOPRAZOLE [Concomitant]
     Indication: GASTROOESOPHAGEAL REFLUX DISEASE
     Route: 048
     Dates: start: 20091216
  3. PENTASA [Concomitant]
     Indication: COLITIS ULCERATIVE
     Route: 048
     Dates: start: 20091216
  4. IMURAN [Concomitant]
     Indication: COLITIS ULCERATIVE
     Route: 048
     Dates: start: 20091015
  5. KETOPROFEN [Concomitant]
     Indication: PERIARTHRITIS
     Route: 061
     Dates: start: 20110317, end: 20120129
  6. LOPEMIN [Concomitant]
     Indication: DIARRHOEA
     Dates: start: 20111210, end: 20120117
  7. HUMIRA [Suspect]
     Route: 058
     Dates: start: 20100629
  8. CEREKINON [Concomitant]
     Indication: DIARRHOEA
     Dates: start: 20110509
  9. POSTERISAN FORTE [Concomitant]
     Indication: HAEMORRHOIDS
     Route: 061
     Dates: start: 20110317, end: 20120507

REACTIONS (1)
  - COLITIS ULCERATIVE [None]
